FAERS Safety Report 7154230-9 (Version None)
Quarter: 2010Q4

REPORT INFORMATION
  Report Type: 
  Country: None (occurrence: None)
  Receive Date: 20101213
  Receipt Date: 20101203
  Transmission Date: 20110411
  Serious: Yes (Other)
  Sender: FDA-Public Use
  Company Number: US-SANOFI-AVENTIS-2010SA055074

PATIENT
  Age: 59 Year
  Sex: Female

DRUGS (6)
  1. LANTUS [Suspect]
     Indication: TYPE 2 DIABETES MELLITUS
     Dates: start: 20090401
  2. LANTUS [Suspect]
     Dates: start: 20090401
  3. LANTUS [Suspect]
     Dates: start: 20090401
  4. LANTUS [Suspect]
     Indication: TYPE 2 DIABETES MELLITUS
     Dosage: DOSE:26 UNIT(S)
     Route: 058
     Dates: start: 20090401
  5. LANTUS [Suspect]
     Dosage: DOSE:26 UNIT(S)
     Route: 058
     Dates: start: 20090401
  6. LANTUS [Suspect]
     Dosage: DOSE:26 UNIT(S)
     Route: 058
     Dates: start: 20090401

REACTIONS (5)
  - BLOOD GLUCOSE INCREASED [None]
  - CONTUSION [None]
  - DEVICE MALFUNCTION [None]
  - FEELING HOT [None]
  - PRODUCT QUALITY ISSUE [None]
